FAERS Safety Report 6367703-3 (Version None)
Quarter: 2009Q3

REPORT INFORMATION
  Report Type: 
  Country: None (occurrence: None)
  Receive Date: 20090921
  Receipt Date: 20090909
  Transmission Date: 20100115
  Serious: Yes (Other)
  Sender: FDA-Public Use
  Company Number: JP-PFIZER INC-2009270665

PATIENT
  Age: 78 Year

DRUGS (7)
  1. ZOLOFT [Suspect]
     Indication: DEPRESSION
     Route: 048
     Dates: start: 20090820, end: 20090824
  2. SEDIEL [Concomitant]
     Route: 048
  3. HI-Z [Concomitant]
     Route: 048
  4. OURENGEDOKUTOU [Concomitant]
     Route: 048
  5. FURSULTIAMINE [Concomitant]
     Route: 048
  6. SELBEX [Concomitant]
     Route: 048
  7. JOSAMYCIN [Concomitant]
     Route: 048

REACTIONS (2)
  - DEPRESSED LEVEL OF CONSCIOUSNESS [None]
  - DIZZINESS [None]
